FAERS Safety Report 17075907 (Version 2)
Quarter: 2019Q4

REPORT INFORMATION
  Report Type: Spontaneous
  Country: US (occurrence: US)
  Receive Date: 20191126
  Receipt Date: 20191126
  Transmission Date: 20200122
  Serious: Yes (Life-Threatening, Other)
  Sender: FDA-Public Use
  Company Number: US-GILEAD-2019-0439151

PATIENT
  Sex: Male

DRUGS (1)
  1. HARVONI [Suspect]
     Active Substance: LEDIPASVIR\SOFOSBUVIR
     Indication: HEPATITIS C
     Route: 065

REACTIONS (4)
  - Aneurysm [Unknown]
  - Abdominal neoplasm [Not Recovered/Not Resolved]
  - Drug ineffective [Unknown]
  - Hepatic neoplasm [Not Recovered/Not Resolved]
